FAERS Safety Report 15850310 (Version 3)
Quarter: 2019Q2

REPORT INFORMATION
  Report Type: Spontaneous
  Country: US (occurrence: US)
  Receive Date: 20190121
  Receipt Date: 20190528
  Transmission Date: 20190711
  Serious: Yes (Other)
  Sender: FDA-Public Use
  Company Number: US-PFIZER INC-2019021539

PATIENT
  Age: 78 Year
  Sex: Female
  Weight: 73 kg

DRUGS (6)
  1. VALERIAN ROOT [VALERIANA OFFICINALIS ROOT] [Concomitant]
     Dosage: UNK
     Dates: start: 201802
  2. LYRICA [Suspect]
     Active Substance: PREGABALIN
     Indication: FIBROMYALGIA
     Dosage: 50 MG, 2X/DAY (EVERY 12 HRS 50 MG) (TAKE ONE CAPSULE BY MOUTH 2 TIMES DAILY.)
     Route: 048
     Dates: start: 201810
  3. ASPIRIN [ACETYLSALICYLIC ACID] [Concomitant]
     Active Substance: ASPIRIN
     Dosage: UNK
  4. CYCLOBENZAPRINE. [Suspect]
     Active Substance: CYCLOBENZAPRINE
     Indication: MUSCLE SPASMS
     Dosage: 5 MG, 2X/DAY (EVERY 12 HRS)
     Dates: start: 201810
  5. SENNA [Suspect]
     Active Substance: SENNA LEAF\SENNOSIDES\SENNOSIDES A AND B
     Indication: CONSTIPATION
     Dosage: 450 MG, 1X/DAY (AT BEDTIME 450 MG PER CAP)
  6. ATENOLOL. [Concomitant]
     Active Substance: ATENOLOL
     Indication: HYPERTENSION
     Dosage: 50 MG, 1X/DAY
     Route: 048

REACTIONS (2)
  - Blindness [Unknown]
  - Insomnia [Not Recovered/Not Resolved]
